FAERS Safety Report 9342741 (Version 1)
Quarter: 2013Q2

REPORT INFORMATION
  Report Type: Spontaneous
  Country: US (occurrence: None)
  Receive Date: 20130607
  Receipt Date: 20130607
  Transmission Date: 20140414
  Serious: Yes (Other)
  Sender: FDA-Public Use
  Company Number: CM13-0019A

PATIENT
  Age: 84 Year
  Sex: Male

DRUGS (1)
  1. DEXTROSE [Suspect]
     Indication: BLOOD GLUCOSE DECREASED
     Dosage: 50 ML, ONCE, INJECTION
     Dates: start: 20130519

REACTIONS (1)
  - Cardiac arrest [None]
